FAERS Safety Report 20786636 (Version 1)
Quarter: 2022Q2

REPORT INFORMATION
  Report Type: Spontaneous
  Country: JP (occurrence: JP)
  Receive Date: 20220505
  Receipt Date: 20220505
  Transmission Date: 20220721
  Serious: Yes (Other)
  Sender: FDA-Public Use
  Company Number: JP-SUN PHARMACEUTICAL INDUSTRIES LTD-2022RR-335084

PATIENT
  Age: 5 Year
  Sex: Male

DRUGS (4)
  1. MELPHALAN [Suspect]
     Active Substance: MELPHALAN
     Indication: Myeloblastoma
     Dosage: 180 MILLIGRAM/SQ. METER, UNK
     Route: 065
  2. METHOTREXATE [Suspect]
     Active Substance: METHOTREXATE
     Indication: Prophylaxis against graft versus host disease
     Dosage: UNK
     Route: 065
  3. TACROLIMUS [Suspect]
     Active Substance: TACROLIMUS
     Indication: Prophylaxis against graft versus host disease
     Dosage: UNK
     Route: 065
  4. FLUDARABINE [Suspect]
     Active Substance: FLUDARABINE PHOSPHATE
     Indication: Myeloblastoma
     Dosage: 150 MILLIGRAM/SQ. METER, UNK
     Route: 065

REACTIONS (8)
  - Drug ineffective [Unknown]
  - Staphylococcal infection [Recovered/Resolved]
  - Device related infection [Recovered/Resolved]
  - Pancreatitis acute [Recovered/Resolved]
  - Clostridium difficile infection [Recovered/Resolved]
  - Gastroenteritis norovirus [Unknown]
  - Nasopharyngitis [Unknown]
  - Familial mediterranean fever [Unknown]
